FAERS Safety Report 21009183 (Version 1)
Quarter: 2022Q2

REPORT INFORMATION
  Report Type: Spontaneous
  Country: DE (occurrence: DE)
  Receive Date: 20220627
  Receipt Date: 20220627
  Transmission Date: 20220721
  Serious: Yes (Other)
  Sender: FDA-Public Use
  Company Number: DE-SUN PHARMACEUTICAL INDUSTRIES LTD-2022RR-332335

PATIENT
  Age: 67 Year
  Sex: Male

DRUGS (3)
  1. LEVETIRACETAM [Suspect]
     Active Substance: LEVETIRACETAM
     Indication: Meningioma
     Dosage: 500 MILLIGRAM, BID
     Route: 065
     Dates: start: 202011
  2. LEVETIRACETAM [Suspect]
     Active Substance: LEVETIRACETAM
     Dosage: 1000 MILLIGRAM, BID
     Route: 065
  3. LAMOTRIGINE [Concomitant]
     Active Substance: LAMOTRIGINE
     Indication: Product used for unknown indication
     Dosage: UNK
     Route: 065

REACTIONS (7)
  - Muscular weakness [Unknown]
  - Fatigue [Unknown]
  - Attention deficit hyperactivity disorder [Unknown]
  - Memory impairment [Unknown]
  - Drug reaction with eosinophilia and systemic symptoms [Unknown]
  - Dizziness [Not Recovered/Not Resolved]
  - Coordination abnormal [Unknown]
